FAERS Safety Report 12809353 (Version 1)
Quarter: 2016Q4

REPORT INFORMATION
  Report Type: Report from Study
  Country: BR (occurrence: BR)
  Receive Date: 20161004
  Receipt Date: 20161004
  Transmission Date: 20170207
  Serious: Yes (Other)
  Sender: FDA-Public Use
  Company Number: PHHY2016BR113647

PATIENT
  Sex: Female
  Weight: 75 kg

DRUGS (1)
  1. EXELON PATCH [Suspect]
     Active Substance: RIVASTIGMINE
     Indication: DEMENTIA
     Dosage: 9.5 MG, QD PATCH 10 (CM2)
     Route: 062

REACTIONS (3)
  - Loss of consciousness [Unknown]
  - Prosopagnosia [Unknown]
  - Speech disorder [Unknown]
